FAERS Safety Report 18668199 (Version 1)
Quarter: 2020Q4

REPORT INFORMATION
  Report Type: Report from Study
  Country: US (occurrence: US)
  Receive Date: 20201228
  Receipt Date: 20201228
  Transmission Date: 20210114
  Serious: No
  Sender: FDA-Public Use
  Company Number: NVSC2020US337804

PATIENT
  Sex: Female

DRUGS (1)
  1. ENTRESTO [Suspect]
     Active Substance: SACUBITRIL\VALSARTAN
     Indication: CARDIAC FAILURE
     Dosage: 100 MG (49/51 MG)
     Route: 048

REACTIONS (5)
  - Oral pruritus [Unknown]
  - Pruritus [Unknown]
  - Lip dry [Unknown]
  - Paraesthesia oral [Unknown]
  - Lip swelling [Unknown]
